FAERS Safety Report 9215379 (Version 3)
Quarter: 2013Q3

REPORT INFORMATION
  Report Type: Spontaneous
  Country: US (occurrence: US)
  Receive Date: 20130405
  Receipt Date: 20130920
  Transmission Date: 20140515
  Serious: Yes (Death, Hospitalization)
  Sender: FDA-Public Use
  Company Number: US-B.I. PHARMACEUTICALS,INC./RIDGEFIELD-2013-BI-09301BP

PATIENT
  Age: 82 Year
  Sex: Male
  Weight: 80.29 kg

DRUGS (19)
  1. PRADAXA [Suspect]
     Indication: ATRIAL FIBRILLATION
     Dosage: 150 MG
     Route: 048
     Dates: start: 20110502, end: 20110510
  2. ALLOPURINOL [Concomitant]
     Dosage: 300 MG
     Route: 048
     Dates: start: 2006, end: 20110510
  3. SIMVASTATIN [Concomitant]
     Dosage: 10 MG
     Route: 048
     Dates: start: 2005, end: 20110510
  4. LASIX [Concomitant]
     Indication: CARDIAC FAILURE CONGESTIVE
     Dosage: 80 MG
     Dates: start: 2010, end: 20110510
  5. XANAX [Concomitant]
     Dates: start: 2008, end: 20110510
  6. FOSAMAX [Concomitant]
     Dosage: 70 MG
     Route: 048
     Dates: start: 2010, end: 20110510
  7. LEVALBUTEROL [Concomitant]
     Dates: start: 2005, end: 20110510
  8. SPIRIVA [Concomitant]
     Dosage: 18 MCG
     Route: 055
     Dates: start: 2006, end: 20110510
  9. XOPENEX INHALATION [Concomitant]
     Dosage: 3.75 MG
     Route: 055
     Dates: start: 2008, end: 20110510
  10. FLOMAX [Concomitant]
     Indication: BENIGN PROSTATIC HYPERPLASIA
     Dosage: 0.4 MG
     Route: 048
     Dates: start: 2010, end: 20110510
  11. PANTOPRAZOLE [Concomitant]
     Dates: start: 2011, end: 20110510
  12. PREDNISONE [Concomitant]
     Indication: TEMPORAL ARTERITIS
     Dosage: 20 MG
     Route: 048
  13. POTASSIUM CHLORIDE [Concomitant]
  14. JANUVIA [Concomitant]
     Indication: TYPE 2 DIABETES MELLITUS
  15. GLUCOPHAGE [Concomitant]
     Dosage: 1000 MG
     Route: 048
  16. AMIODARONE [Concomitant]
     Indication: ATRIAL FIBRILLATION
     Dosage: 400 MG
     Route: 048
  17. CARDIZEM [Concomitant]
     Indication: HEART RATE
     Dosage: 120 MG
     Route: 048
  18. HEPARIN [Concomitant]
  19. OXYGEN [Concomitant]
     Indication: CHRONIC OBSTRUCTIVE PULMONARY DISEASE

REACTIONS (11)
  - Gastrointestinal haemorrhage [Fatal]
  - Acute respiratory failure [Fatal]
  - Septic shock [Fatal]
  - Bacteraemia [Fatal]
  - Anaemia [Fatal]
  - Haemorrhage [Fatal]
  - Aspiration [Fatal]
  - Hypotension [Fatal]
  - Renal failure acute [Fatal]
  - Haematoma [Unknown]
  - Coagulopathy [Unknown]
